FAERS Safety Report 13235824 (Version 2)
Quarter: 2017Q1

REPORT INFORMATION
  Report Type: Report from Study
  Country: JP (occurrence: JP)
  Receive Date: 20170215
  Receipt Date: 20170228
  Transmission Date: 20170428
  Serious: Yes (Hospitalization)
  Sender: FDA-Public Use
  Company Number: JP-ASTELLAS-2017JP002711AA

PATIENT
  Age: 85 Year
  Sex: Male
  Weight: 61 kg

DRUGS (6)
  1. HACHIMIGAN [Concomitant]
     Active Substance: HERBALS
     Indication: NOCTURIA
     Route: 048
     Dates: start: 20140122
  2. LEUPLIN [Concomitant]
     Active Substance: LEUPROLIDE ACETATE
     Indication: HORMONE-REFRACTORY PROSTATE CANCER
     Dosage: UNK UNK, UNKNOWN FREQ.
     Route: 058
     Dates: start: 20160622
  3. ENZALUTAMIDE [Suspect]
     Active Substance: ENZALUTAMIDE
     Indication: HORMONE-REFRACTORY PROSTATE CANCER
     Route: 048
     Dates: start: 20161129
  4. AMLODIPINE                         /00972402/ [Concomitant]
     Active Substance: AMLODIPINE BESYLATE
     Indication: HYPERTENSION
     Route: 048
     Dates: start: 20161117
  5. NAPAGELN [Concomitant]
     Active Substance: FELBINAC
     Indication: MUSCLE STRAIN
     Dosage: APPROPRIATE, THRICE DAILY
     Route: 062
     Dates: start: 20170106
  6. URIEF [Concomitant]
     Active Substance: SILODOSIN
     Indication: NOCTURIA
     Route: 048
     Dates: start: 20130116

REACTIONS (2)
  - Coronary artery stenosis [Not Recovered/Not Resolved]
  - Cardiac failure acute [Recovering/Resolving]

NARRATIVE: CASE EVENT DATE: 20170210
